FAERS Safety Report 18665319 (Version 1)
Quarter: 2020Q4

REPORT INFORMATION
  Report Type: Spontaneous
  Country: US (occurrence: US)
  Receive Date: 20201225
  Receipt Date: 20201225
  Transmission Date: 20210114
  Serious: Yes (Hospitalization)
  Sender: FDA-Public Use
  Company Number: US-BAUSCH-BL-2020-038365

PATIENT
  Age: 56 Year
  Sex: Male

DRUGS (12)
  1. TARGRETIN [Suspect]
     Active Substance: BEXAROTENE
     Route: 065
     Dates: start: 2015
  2. DOXORUBICIN [Concomitant]
     Active Substance: DOXORUBICIN
     Indication: CUTANEOUS T-CELL LYMPHOMA STAGE IV
  3. ROMIDEPSIN. [Concomitant]
     Active Substance: ROMIDEPSIN
     Indication: CUTANEOUS T-CELL LYMPHOMA STAGE IV
     Dosage: SIX CYCLES
  4. VINCRISTINE [Concomitant]
     Active Substance: VINCRISTINE
     Indication: CUTANEOUS T-CELL LYMPHOMA STAGE IV
  5. TARGRETIN [Suspect]
     Active Substance: BEXAROTENE
     Indication: CUTANEOUS T-CELL LYMPHOMA STAGE IV
     Route: 065
  6. RITUXIMAB. [Concomitant]
     Active Substance: RITUXIMAB
     Indication: CUTANEOUS T-CELL LYMPHOMA STAGE IV
  7. METHOTREXATE/CYTARABINE [Concomitant]
     Indication: CUTANEOUS T-CELL LYMPHOMA STAGE IV
  8. CYCLOPHOSPHAMIDE. [Concomitant]
     Active Substance: CYCLOPHOSPHAMIDE
     Indication: CUTANEOUS T-CELL LYMPHOMA STAGE IV
  9. CARBOPLATIN. [Concomitant]
     Active Substance: CARBOPLATIN
     Indication: CUTANEOUS T-CELL LYMPHOMA STAGE IV
  10. IFOSFAMIDE. [Concomitant]
     Active Substance: IFOSFAMIDE
     Indication: CUTANEOUS T-CELL LYMPHOMA STAGE IV
  11. ETOPOSIDE. [Concomitant]
     Active Substance: ETOPOSIDE
     Indication: CUTANEOUS T-CELL LYMPHOMA STAGE IV
  12. INTERFERON ALFA NOS [Concomitant]
     Active Substance: INTERFERON ALFA-2A OR INTERFERON ALFA-2B
     Indication: CUTANEOUS T-CELL LYMPHOMA STAGE IV

REACTIONS (1)
  - Arteriosclerosis coronary artery [Recovered/Resolved]

NARRATIVE: CASE EVENT DATE: 2016
